FAERS Safety Report 14432499 (Version 2)
Quarter: 2019Q2

REPORT INFORMATION
  Report Type: Report from Study
  Country: US (occurrence: US)
  Receive Date: 20180124
  Receipt Date: 20190402
  Transmission Date: 20190711
  Serious: No
  Sender: FDA-Public Use
  Company Number: PHEH2018US002710

PATIENT
  Sex: Male
  Weight: 17 kg

DRUGS (2)
  1. ILARIS [Suspect]
     Active Substance: CANAKINUMAB
     Indication: PYREXIA
     Dosage: UNK
     Route: 058
     Dates: start: 20180116
  2. ILARIS [Suspect]
     Active Substance: CANAKINUMAB
     Dosage: 35 MG, QMO
     Route: 058

REACTIONS (5)
  - Pyrexia [Not Recovered/Not Resolved]
  - Inflammatory marker increased [Unknown]
  - Drug ineffective [Unknown]
  - Headache [Unknown]
  - Rhinorrhoea [Unknown]
